FAERS Safety Report 6359340-1 (Version None)
Quarter: 2009Q3

REPORT INFORMATION
  Report Type: 
  Country: None (occurrence: None)
  Receive Date: 20090917
  Receipt Date: 20090909
  Transmission Date: 20100115
  Serious: Yes (Hospitalization, Other)
  Sender: FDA-Public Use
  Company Number: US-BRISTOL-MYERS SQUIBB COMPANY-14778559

PATIENT
  Age: 75 Year
  Sex: Male

DRUGS (12)
  1. COUMADIN [Suspect]
     Indication: CORONARY ARTERY DISEASE
  2. COUMADIN [Suspect]
     Indication: HEART VALVE REPLACEMENT
  3. PLAVIX [Suspect]
     Indication: STENT PLACEMENT
     Dosage: 2003-NOV2008,22JAN09-06MAR09,MAR09-07APR09,21MAY-CONT
     Route: 048
     Dates: start: 20030101
  4. PLAVIX [Suspect]
     Indication: CORONARY ARTERY DISEASE
     Dosage: 2003-NOV2008,22JAN09-06MAR09,MAR09-07APR09,21MAY-CONT
     Route: 048
     Dates: start: 20030101
  5. PLAVIX [Suspect]
     Indication: HEART VALVE REPLACEMENT
     Dosage: 2003-NOV2008,22JAN09-06MAR09,MAR09-07APR09,21MAY-CONT
     Route: 048
     Dates: start: 20030101
  6. ASPIRIN [Suspect]
     Indication: CORONARY ARTERY DISEASE
  7. ASPIRIN [Suspect]
     Indication: HEART VALVE REPLACEMENT
  8. METOPROLOL TARTRATE [Concomitant]
     Route: 065
  9. RAMIPRIL [Concomitant]
     Route: 065
  10. VYTORIN [Concomitant]
     Indication: BLOOD CHOLESTEROL
  11. ISOSORBIDE MONONITRATE [Concomitant]
     Route: 065
     Dates: start: 20090420
  12. AMITRIPTYLINE [Concomitant]
     Route: 065

REACTIONS (9)
  - ANGINA PECTORIS [None]
  - DIZZINESS [None]
  - GASTRIC HAEMORRHAGE [None]
  - GASTRITIS [None]
  - HAEMORRHAGIC ANAEMIA [None]
  - MYOCARDIAL INFARCTION [None]
  - OESOPHAGEAL HAEMORRHAGE [None]
  - SYNCOPE [None]
  - ULCER HAEMORRHAGE [None]
